FAERS Safety Report 8304302-8 (Version None)
Quarter: 2012Q2

REPORT INFORMATION
  Report Type: 
  Country: None (occurrence: None)
  Receive Date: 20120423
  Receipt Date: 20120423
  Transmission Date: 20120825
  Serious: No
  Sender: FDA-Public Use
  Company Number: None

PATIENT
  Age: 55 Month
  Sex: Male
  Weight: 6.8038 kg

DRUGS (2)
  1. HYLANDS BABY TEETHING TABLETS [Concomitant]
  2. HYLANDS BABY TEETHING TABLETS [Suspect]
     Indication: TEETHING
     Dosage: 2 TO 3 TABS
     Route: 048
     Dates: start: 20120413, end: 20120420

REACTIONS (1)
  - RASH GENERALISED [None]
